FAERS Safety Report 6740239-3 (Version None)
Quarter: 2010Q2

REPORT INFORMATION
  Report Type: 
  Country: None (occurrence: None)
  Receive Date: 20100525
  Receipt Date: 20100519
  Transmission Date: 20101027
  Serious: Yes (Other)
  Sender: FDA-Public Use
  Company Number: D0066411A

PATIENT
  Sex: Male
  Weight: 72 kg

DRUGS (4)
  1. REQUIP [Suspect]
     Indication: PARKINSON'S DISEASE
     Dosage: 8MG PER DAY
     Route: 048
  2. REQUIP [Concomitant]
     Dosage: 2MG TWICE PER DAY
     Route: 048
  3. MADOPAR [Concomitant]
     Route: 048
  4. SIFROL [Concomitant]
     Dosage: .35MG THREE TIMES PER DAY
     Route: 065

REACTIONS (3)
  - DRUG INEFFECTIVE [None]
  - PARKINSON'S DISEASE [None]
  - PRODUCT QUALITY ISSUE [None]
